FAERS Safety Report 23897063 (Version 3)
Quarter: 2025Q3

REPORT INFORMATION
  Report Type: Report from Study
  Country: US (occurrence: US)
  Receive Date: 20240524
  Receipt Date: 20250816
  Transmission Date: 20251021
  Serious: Yes (Hospitalization)
  Sender: ALEXION PHARMACEUTICALS
  Company Number: US-ALXN-A202205081

PATIENT
  Age: 56 Year
  Sex: Female
  Weight: 64.9 kg

DRUGS (74)
  1. SOLIRIS [Suspect]
     Active Substance: ECULIZUMAB
     Indication: Myasthenia gravis
     Dosage: 900 MG, QW
     Route: 065
     Dates: start: 20191220, end: 20200110
  2. SOLIRIS [Suspect]
     Active Substance: ECULIZUMAB
     Route: 065
     Dates: start: 20200117, end: 20200117
  3. SOLIRIS [Suspect]
     Active Substance: ECULIZUMAB
     Dosage: 1200 MG, Q2W
     Route: 065
     Dates: start: 20200201, end: 20221021
  4. SOLIRIS [Suspect]
     Active Substance: ECULIZUMAB
     Route: 065
     Dates: start: 20221021, end: 20231115
  5. SOLIRIS [Suspect]
     Active Substance: ECULIZUMAB
     Route: 065
     Dates: start: 20231115, end: 20231206
  6. SOLIRIS [Suspect]
     Active Substance: ECULIZUMAB
     Route: 065
  7. ULTOMIRIS [Suspect]
     Active Substance: RAVULIZUMAB-CWVZ
     Indication: Myasthenia gravis
     Route: 065
     Dates: start: 20221104, end: 20221104
  8. ULTOMIRIS [Suspect]
     Active Substance: RAVULIZUMAB-CWVZ
     Route: 065
     Dates: start: 20221118, end: 20230824
  9. ULTOMIRIS [Suspect]
     Active Substance: RAVULIZUMAB-CWVZ
     Route: 065
  10. NEURONTIN [Concomitant]
     Active Substance: GABAPENTIN
     Dosage: 600 MILLIGRAM, TID
  11. NEURONTIN [Concomitant]
     Active Substance: GABAPENTIN
     Dosage: 300 MILLIGRAM, TID
     Dates: start: 20220419
  12. AMITRIPTYLINE [Concomitant]
     Active Substance: AMITRIPTYLINE
     Route: 065
  13. SYNTHROID [Concomitant]
     Active Substance: LEVOTHYROXINE SODIUM
     Dosage: 1 DOSAGE FORM, QD
  14. SYNTHROID [Concomitant]
     Active Substance: LEVOTHYROXINE SODIUM
     Dosage: 75 MICROGRAM, AC?BEFORE MEALS
     Dates: start: 20220419
  15. SYNTHROID [Concomitant]
     Active Substance: LEVOTHYROXINE SODIUM
  16. CELLCEPT [Concomitant]
     Active Substance: MYCOPHENOLATE MOFETIL
     Dosage: 500 MILLIGRAM, BID
     Dates: start: 20220419
  17. CARAFATE [Concomitant]
     Active Substance: SUCRALFATE
     Dosage: 10 MILLILITER, QID
  18. CARAFATE [Concomitant]
     Active Substance: SUCRALFATE
     Dosage: 1 GRAM, QID
     Dates: start: 20220419
  19. CARAFATE [Concomitant]
     Active Substance: SUCRALFATE
     Dosage: 1 GRAM, AC?BEFORE MEALS
     Dates: start: 20220419
  20. CARAFATE [Concomitant]
     Active Substance: SUCRALFATE
     Dosage: 1 GRAM, QHS
     Dates: start: 20220419
  21. TYLENOL [Concomitant]
     Active Substance: ACETAMINOPHEN
     Indication: Pain
     Dosage: 650 MILLIGRAM, Q6H
  22. TYLENOL [Concomitant]
     Active Substance: ACETAMINOPHEN
  23. ALIGN [Concomitant]
     Active Substance: BIFIDOBACTERIUM LONGUM SUBSP. INFANTIS
     Dosage: 1 DOSAGE FORM, QD (WITH DINNER)
  24. MAALOX                             /00416501/ [Concomitant]
     Dosage: 10 MILLILITER, BID
  25. MAALOX                             /00416501/ [Concomitant]
  26. MAALOX                             /00416501/ [Concomitant]
     Dosage: 30 MILLILITER, Q4H
  27. MAALOX                             /00416501/ [Concomitant]
  28. MAALOX                             /00416501/ [Concomitant]
  29. MAALOX                             /00416501/ [Concomitant]
     Dosage: 15 MILLILITER, QD
  30. ELAVIL [Concomitant]
     Active Substance: AMITRIPTYLINE HYDROCHLORIDE
     Dosage: 1 DOSAGE FORM, QHS
     Dates: start: 20220419
  31. ASPIRIN [Concomitant]
     Active Substance: ASPIRIN
     Indication: Thrombosis
     Dosage: 81 MILLIGRAM, QD
     Dates: start: 20220419
  32. DEXLANSOPRAZOLE [Concomitant]
     Active Substance: DEXLANSOPRAZOLE
     Dosage: 60 MILLIGRAM, QHS
  33. BENADRYL [Concomitant]
     Active Substance: DIPHENHYDRAMINE HYDROCHLORIDE
     Indication: Vomiting
  34. BENADRYL [Concomitant]
     Active Substance: DIPHENHYDRAMINE HYDROCHLORIDE
     Indication: Nausea
     Dosage: 2 DOSAGE FORM, Q6H
  35. VIBRA-TABS                         /00055702/ [Concomitant]
     Indication: Sinusitis
     Dosage: 1 DOSAGE FORM, BID FOR SEVEN DAYS
  36. ELIQUIS [Concomitant]
     Active Substance: APIXABAN
     Dosage: UNK, Q12H
  37. ELIQUIS [Concomitant]
     Active Substance: APIXABAN
     Dosage: 5 MILLIGRAM, BID
     Dates: start: 20220419
  38. SENOKOT-S [Concomitant]
     Active Substance: DOCUSATE SODIUM\SENNOSIDES
     Indication: Constipation
  39. SENOKOT-S [Concomitant]
     Active Substance: DOCUSATE SODIUM\SENNOSIDES
     Dosage: 2 DOSAGE FORM, QD
  40. SENOKOT-S [Concomitant]
     Active Substance: DOCUSATE SODIUM\SENNOSIDES
  41. FLONASE                            /00972202/ [Concomitant]
     Dosage: 1 SPRAY IN EACH NOSTRIL, QD
     Dates: start: 20220419
  42. LINZESS [Concomitant]
     Active Substance: LINACLOTIDE
     Dosage: 145 ?G, QD BEFORE BREAKFAST
  43. LINZESS [Concomitant]
     Active Substance: LINACLOTIDE
  44. LINZESS [Concomitant]
     Active Substance: LINACLOTIDE
     Dosage: 145 MICROGRAM, AC?BEFORE MEALS
     Dates: start: 20220419
  45. MILK OF MAGNESIA [Concomitant]
     Active Substance: MAGNESIUM HYDROXIDE
     Indication: Constipation
     Dosage: 15 MILLILITER, QD
  46. COMPAZINE                          /00013302/ [Concomitant]
     Indication: Nausea
     Dosage: 1 DOSAGE FORM, Q6H
  47. COMPAZINE                          /00013302/ [Concomitant]
     Indication: Vomiting
  48. MAXITROL [Concomitant]
     Active Substance: DEXAMETHASONE\NEOMYCIN SULFATE\POLYMYXIN B SULFATE
     Indication: Sinusitis
     Dosage: UNK, TID
     Route: 065
  49. MAXITROL [Concomitant]
     Active Substance: DEXAMETHASONE\NEOMYCIN SULFATE\POLYMYXIN B SULFATE
     Indication: Lacrimation increased
  50. SUDAFED PE CONGESTION [Concomitant]
     Active Substance: PHENYLEPHRINE HYDROCHLORIDE
     Indication: Sinus congestion
     Dosage: 10 MILLIGRAM, QD
  51. SUDAFED PE CONGESTION [Concomitant]
     Active Substance: PHENYLEPHRINE HYDROCHLORIDE
  52. ALDACTONE                          /00006201/ [Concomitant]
     Indication: Hypertension
     Dosage: 25 MILLIGRAM, QD (MORNING)
     Dates: start: 20211013
  53. ALDACTONE                          /00006201/ [Concomitant]
  54. ZANAFLEX [Concomitant]
     Active Substance: TIZANIDINE HYDROCHLORIDE
     Dosage: 1 DOSAGE FORM, TID
  55. ULTRAM [Concomitant]
     Active Substance: TRAMADOL HYDROCHLORIDE
     Indication: Pain
     Dosage: 1 DOSAGE FORM, Q8H
  56. ULTRAM [Concomitant]
     Active Substance: TRAMADOL HYDROCHLORIDE
  57. VITAMIN B COMPLEX WITH VITAMIN C   /02146701/ [Concomitant]
     Dosage: 1 DOSAGE FORM, QD
  58. VITAMIN C [Concomitant]
     Active Substance: ASCORBIC ACID
     Dosage: 500 MILLIGRAM, QD
  59. SODIUM CHLORIDE [Concomitant]
     Active Substance: SODIUM CHLORIDE
  60. SODIUM CHLORIDE [Concomitant]
     Active Substance: SODIUM CHLORIDE
     Dosage: 2 MILLILITER, BID
     Route: 065
     Dates: start: 20220419
  61. NORCO [Concomitant]
     Active Substance: ACETAMINOPHEN\HYDROCODONE BITARTRATE
     Dosage: 1 DOSAGE FORM, Q4H
     Dates: start: 20220419
  62. NORCO [Concomitant]
     Active Substance: ACETAMINOPHEN\HYDROCODONE BITARTRATE
     Dates: start: 20220419
  63. PROTONIX [Concomitant]
     Active Substance: PANTOPRAZOLE SODIUM
     Dosage: 40 MILLIGRAM, AC?BEFORE MEALS
     Dates: start: 20220419
  64. PROTONIX [Concomitant]
     Active Substance: PANTOPRAZOLE SODIUM
  65. APRESOLINE HYDROCHLORIDE [Concomitant]
     Active Substance: HYDRALAZINE HYDROCHLORIDE
     Dosage: 10 MILLIGRAM, Q6H
  66. APRESOLINE HYDROCHLORIDE [Concomitant]
     Active Substance: HYDRALAZINE HYDROCHLORIDE
  67. ZOFRAN [Concomitant]
     Active Substance: ONDANSETRON HYDROCHLORIDE
     Dosage: 4 MILLIGRAM, Q6H
  68. ZOFRAN [Concomitant]
     Active Substance: ONDANSETRON HYDROCHLORIDE
  69. ANTIVERT                           /00072802/ [Concomitant]
     Dosage: 25 MILLIGRAM, TID
     Dates: start: 20220419
  70. LIORESAL [Concomitant]
     Active Substance: BACLOFEN
     Dosage: 10 MILLIGRAM, BID
  71. LEVOTHYROXINE [Concomitant]
     Active Substance: LEVOTHYROXINE
     Route: 065
  72. REGLAN                             /00041901/ [Concomitant]
     Dosage: 5 MILLIGRAM, TID
  73. DIPHENHYDRAMINE [Concomitant]
     Active Substance: DIPHENHYDRAMINE
     Indication: Headache
     Route: 065
     Dates: start: 20220418, end: 20220420
  74. GABAPENTIN [Concomitant]
     Active Substance: GABAPENTIN
     Indication: Thrombosis
     Dates: start: 20211026, end: 20221108

REACTIONS (5)
  - Hypoaesthesia [Recovered/Resolved]
  - Headache [Recovered/Resolved]
  - Neck pain [Recovered/Resolved]
  - Dizziness [Recovered/Resolved]
  - Dyspnoea [Recovered/Resolved]

NARRATIVE: CASE EVENT DATE: 20220417
